FAERS Safety Report 11771486 (Version 1)
Quarter: 2015Q4

REPORT INFORMATION
  Report Type: Spontaneous
  Country: US (occurrence: None)
  Receive Date: 20151123
  Receipt Date: 20151123
  Transmission Date: 20160304
  Serious: Yes (Other)
  Sender: FDA-Public Use
  Company Number: None

PATIENT
  Age: 61 Year
  Sex: Male
  Weight: 88.45 kg

DRUGS (9)
  1. NIFEDICAL XL [Suspect]
     Active Substance: NIFEDIPINE
     Indication: HYPERTENSION
     Route: 048
     Dates: start: 20151029, end: 20151106
  2. NIFEDIPINE XL [Concomitant]
     Active Substance: NIFEDIPINE
  3. ATORVASTATIN CALCIUM 10MG. (LIPITOR GENERIC) [Concomitant]
  4. BISOPROLOL/HCTZ 5/6.5 MG (ZIAC GENERIC) [Concomitant]
  5. ABC PLUS SENIOR MULTI-VITAMINS [Concomitant]
  6. JOINT SOOTHER GLUCOSAMINE-CHONDROITIN-MSM [Concomitant]
  7. 81 MG ASPIRIN [Concomitant]
  8. CALCIUM [Concomitant]
     Active Substance: CALCIUM
  9. LUTIGOLD EXTRA [Concomitant]

REACTIONS (6)
  - Myalgia [None]
  - Headache [None]
  - Ear pain [None]
  - Ear discomfort [None]
  - Abdominal pain upper [None]
  - Product substitution issue [None]

NARRATIVE: CASE EVENT DATE: 20151029
